FAERS Safety Report 8730202 (Version 3)
Quarter: 2012Q4

REPORT INFORMATION
  Report Type: Report from Study
  Country: GB (occurrence: GB)
  Receive Date: 20120817
  Receipt Date: 20121107
  Transmission Date: 20130627
  Serious: Yes (Other)
  Sender: FDA-Public Use
  Company Number: GB-EISAI INC-E7389-02863-SOL-GB

PATIENT
  Age: 47 Year
  Sex: Female
  Weight: 74 kg

DRUGS (4)
  1. HALAVEN [Suspect]
     Indication: METASTATIC BREAST CANCER
     Route: 041
     Dates: start: 20120525
  2. TRASTUZUMAB [Suspect]
     Indication: METASTATIC BREAST CANCER
     Route: 041
     Dates: start: 20120525
  3. CO-CODAMOL [Concomitant]
     Indication: SHOULDER PAIN
     Dates: start: 20120419
  4. IBUPROFEN [Concomitant]
     Indication: HEADACHE
     Dates: start: 20120419

REACTIONS (1)
  - Sinusitis [Not Recovered/Not Resolved]
